FAERS Safety Report 10477499 (Version 2)
Quarter: 2014Q4

REPORT INFORMATION
  Report Type: Spontaneous
  Country: BR (occurrence: BR)
  Receive Date: 20140926
  Receipt Date: 20141007
  Transmission Date: 20150528
  Serious: Yes (Other)
  Sender: FDA-Public Use
  Company Number: BR-ASTRAZENECA-2014SE70440

PATIENT
  Sex: Female
  Weight: 60 kg

DRUGS (2)
  1. ZOLADEX [Suspect]
     Active Substance: GOSERELIN ACETATE
     Indication: OVARIAN CYST
     Dosage: MONTHLY
     Route: 058
     Dates: start: 20140820
  2. ZOLADEX [Suspect]
     Active Substance: GOSERELIN ACETATE
     Indication: ENDOMETRIOSIS
     Dosage: MONTHLY
     Route: 058
     Dates: start: 20140820

REACTIONS (3)
  - Nausea [Not Recovered/Not Resolved]
  - Feeling hot [Unknown]
  - Exposure during pregnancy [Unknown]
